FAERS Safety Report 15931528 (Version 1)
Quarter: 2019Q1

REPORT INFORMATION
  Report Type: Spontaneous
  Country: US (occurrence: US)
  Receive Date: 20190116
  Receipt Date: 20190116
  Transmission Date: 20190417
  Serious: Yes (Other)
  Sender: FDA-Public Use
  Company Number: None

PATIENT
  Age: 41 Year
  Sex: Male
  Weight: 70 kg

DRUGS (3)
  1. IFOSFAMIDE. [Suspect]
     Active Substance: IFOSFAMIDE
     Dosage: ?          OTHER DOSE:10672.38 MG;?
     Dates: end: 20181015
  2. TAXOL [Suspect]
     Active Substance: PACLITAXEL
     Dosage: ?          OTHER DOSE:355.75MG;?
     Dates: end: 20181013
  3. G-CSF (FILGRASTIM , AMGEN) [Suspect]
     Active Substance: FILGRASTIM
     Dates: end: 20181023

REACTIONS (4)
  - Deep vein thrombosis [None]
  - Pulmonary embolism [None]
  - Pneumonitis [None]
  - Right ventricular failure [None]

NARRATIVE: CASE EVENT DATE: 20181024
